FAERS Safety Report 19913242 (Version 4)
Quarter: 2021Q4

REPORT INFORMATION
  Report Type: Report from Study
  Country: DE (occurrence: DE)
  Receive Date: 20211004
  Receipt Date: 20211025
  Transmission Date: 20220303
  Serious: Yes (Life-Threatening)
  Sender: FDA-Public Use
  Company Number: DE-BOEHRINGERINGELHEIM-2021-BI-130232

PATIENT
  Age: 58 Year
  Sex: Female
  Weight: 65 kg

DRUGS (10)
  1. NINTEDANIB [Suspect]
     Active Substance: NINTEDANIB
     Indication: Non-small cell lung cancer
     Dosage: 2-0-2; 2X200MG D2-21
     Dates: start: 20210603, end: 20210716
  2. DOCETAXEL [Suspect]
     Active Substance: DOCETAXEL
     Indication: Non-small cell lung cancer
     Dates: start: 20210602, end: 20210714
  3. BISOPROLOL [Concomitant]
     Active Substance: BISOPROLOL
     Indication: Product used for unknown indication
     Dosage: 1-0-0-0-0
  4. AMLODIPINE BESYLATE [Concomitant]
     Active Substance: AMLODIPINE BESYLATE
     Indication: Product used for unknown indication
     Dosage: 1-0-0-0-0
  5. CANDESARTAN CILEXETIL [Concomitant]
     Active Substance: CANDESARTAN CILEXETIL
     Indication: Product used for unknown indication
     Dosage: 1-0-0-0-0
  6. METAMIZOLE [Concomitant]
     Active Substance: METAMIZOLE
     Indication: Product used for unknown indication
     Dosage: 20-20-0-20-0
  7. XARELTO [Concomitant]
     Active Substance: RIVAROXABAN
     Indication: Product used for unknown indication
     Dosage: 1-0-0-0-0
     Dates: start: 20201120
  8. CHOLECALCIFEROL [Concomitant]
     Active Substance: CHOLECALCIFEROL
     Indication: Product used for unknown indication
     Dosage: 1-0-0-0-0
  9. FOLIC ACID [Concomitant]
     Active Substance: FOLIC ACID
     Indication: Product used for unknown indication
     Dosage: 1-0-0-1
  10. INNOHEP [Concomitant]
     Active Substance: TINZAPARIN SODIUM
     Indication: Product used for unknown indication
     Dosage: 0-0-1

REACTIONS (2)
  - Hypercoagulation [Recovering/Resolving]
  - Peripheral artery thrombosis [Recovered/Resolved]

NARRATIVE: CASE EVENT DATE: 20210716
